FAERS Safety Report 6466207-7 (Version None)
Quarter: 2009Q4

REPORT INFORMATION
  Report Type: 
  Country: None (occurrence: None)
  Receive Date: 20091202
  Receipt Date: 20091118
  Transmission Date: 20100525
  Serious: Yes (Hospitalization)
  Sender: FDA-Public Use
  Company Number: PHHY2009JP42539

PATIENT
  Age: 76 Year
  Sex: Female

DRUGS (7)
  1. DIOVAN [Suspect]
     Dosage: 80 MG DAILY
     Route: 048
     Dates: start: 20030101
  2. VOLTAREN [Suspect]
     Dosage: 75 MG DAILY
     Route: 048
     Dates: start: 20090401
  3. VOLTAREN [Suspect]
     Dosage: UNK
     Route: 048
  4. RIMATIL [Suspect]
     Indication: RHEUMATOID ARTHRITIS
     Dosage: 4 DF
     Route: 048
  5. GASTER D [Suspect]
     Dosage: UNK
  6. ONON [Suspect]
     Dosage: UNK
  7. BAKUMONDOUTO [Suspect]
     Dosage: UNK

REACTIONS (1)
  - INTERSTITIAL LUNG DISEASE [None]
